FAERS Safety Report 21829323 (Version 3)
Quarter: 2024Q2

REPORT INFORMATION
  Report Type: Spontaneous
  Country: US (occurrence: US)
  Receive Date: 20230106
  Receipt Date: 20240517
  Transmission Date: 20240716
  Serious: Yes (Other)
  Sender: FDA-Public Use
  Company Number: US-Hikma Pharmaceuticals USA Inc.-US-H14001-22-02646

PATIENT
  Age: 54 Year
  Sex: Female
  Weight: 89.1 kg

DRUGS (7)
  1. TOZINAMERAN [Suspect]
     Active Substance: TOZINAMERAN
     Indication: COVID-19 immunisation
     Dosage: 30 MICROGRAM, SINGLE
     Route: 065
     Dates: start: 20220922, end: 20220922
  2. CARVEDILOL [Suspect]
     Active Substance: CARVEDILOL
     Indication: Hypertension
     Dosage: 25 MILLIGRAM, BID
     Route: 048
     Dates: start: 2011
  3. ISOSORBIDE MONONITRATE [Suspect]
     Active Substance: ISOSORBIDE MONONITRATE
     Indication: Arteriosclerosis
     Dosage: 60 MILLIGRAM, QD
     Route: 048
     Dates: start: 2011
  4. LISINOPRIL [Suspect]
     Active Substance: LISINOPRIL
     Indication: Hypertension
     Dosage: 40 MILLIGRAM, QD
     Route: 048
     Dates: start: 2011
  5. ATORVASTATIN [Concomitant]
     Active Substance: ATORVASTATIN
     Indication: Hyperlipidaemia
     Dosage: UNKNOWN
     Route: 048
     Dates: start: 2018
  6. GABAPENTIN [Concomitant]
     Active Substance: GABAPENTIN
     Indication: Osteoarthritis
     Dosage: UNKNOWN
     Route: 048
     Dates: start: 2016
  7. SINGULAIR [Concomitant]
     Active Substance: MONTELUKAST SODIUM
     Indication: Seasonal allergy
     Dosage: UNKNOWN
     Route: 048
     Dates: start: 2019

REACTIONS (6)
  - Hypotension [Recovered/Resolved]
  - Dizziness [Recovered/Resolved]
  - Nausea [Recovered/Resolved]
  - Vomiting [Recovered/Resolved]
  - Dehydration [Unknown]
  - Weight increased [Unknown]

NARRATIVE: CASE EVENT DATE: 20220930
